FAERS Safety Report 12860030 (Version 1)
Quarter: 2016Q4

REPORT INFORMATION
  Report Type: Spontaneous
  Country: GB (occurrence: GB)
  Receive Date: 20161019
  Receipt Date: 20161019
  Transmission Date: 20170207
  Serious: Yes (Other)
  Sender: FDA-Public Use
  Company Number: GB-GLAXOSMITHKLINE-GB2016150523

PATIENT
  Age: 30 Year
  Sex: Male
  Weight: 62 kg

DRUGS (1)
  1. TERBINAFINE. [Suspect]
     Active Substance: TERBINAFINE
     Indication: PRODUCT USED FOR UNKNOWN INDICATION
     Dosage: UNK
     Route: 003
     Dates: start: 20160102, end: 20160107

REACTIONS (3)
  - Skin swelling [Recovered/Resolved with Sequelae]
  - Rash [Recovered/Resolved with Sequelae]
  - Pruritus [Recovered/Resolved with Sequelae]

NARRATIVE: CASE EVENT DATE: 20160102
